FAERS Safety Report 8213596-9 (Version None)
Quarter: 2012Q1

REPORT INFORMATION
  Report Type: 
  Country: None (occurrence: None)
  Receive Date: 20120315
  Receipt Date: 20120306
  Transmission Date: 20120608
  Serious: Yes (Hospitalization)
  Sender: FDA-Public Use
  Company Number: BR-ASTRAZENECA-2012SE00019

PATIENT
  Age: 63 Year
  Sex: Male

DRUGS (5)
  1. ASPIRIN [Concomitant]
     Route: 065
  2. ATACAND [Suspect]
     Route: 048
  3. ATENOLOL [Concomitant]
     Indication: HYPERTENSION
  4. NEXIUM [Suspect]
     Route: 048
  5. BRILINTA [Suspect]
     Route: 048
     Dates: start: 20111124, end: 20120225

REACTIONS (3)
  - ARTERIAL OCCLUSIVE DISEASE [None]
  - FATIGUE [None]
  - DYSPNOEA [None]
